FAERS Safety Report 15891991 (Version 3)
Quarter: 2019Q1

REPORT INFORMATION
  Report Type: Report from Study
  Country: IT (occurrence: IT)
  Receive Date: 20190130
  Receipt Date: 20190214
  Transmission Date: 20190417
  Serious: Yes (Other)
  Sender: FDA-Public Use
  Company Number: IT-MYLANLABS-2019M1008325

PATIENT
  Age: 46 Year
  Sex: Male

DRUGS (1)
  1. KETOROLAC [Suspect]
     Active Substance: KETOROLAC\KETOROLAC TROMETHAMINE
     Indication: CHEST PAIN
     Dosage: 1 DOSAGE FORM, TOTAL
     Route: 030
     Dates: start: 20180713, end: 20180713

REACTIONS (4)
  - Lip oedema [Recovering/Resolving]
  - Skin plaque [Recovering/Resolving]
  - Off label use [Unknown]
  - Urticaria [Recovering/Resolving]

NARRATIVE: CASE EVENT DATE: 20180713
